FAERS Safety Report 21236080 (Version 1)
Quarter: 2022Q3

REPORT INFORMATION
  Report Type: Spontaneous
  Country: US (occurrence: US)
  Receive Date: 20220822
  Receipt Date: 20220822
  Transmission Date: 20221027
  Serious: Yes (Other)
  Sender: FDA-Public Use
  Company Number: US-BRISTOL-MYERS SQUIBB COMPANY-2022-087845

PATIENT
  Age: 94 Year
  Sex: Female
  Weight: 54.43 kg

DRUGS (5)
  1. REVLIMID [Suspect]
     Active Substance: LENALIDOMIDE
     Indication: Plasma cell myeloma
     Dosage: DOSE : UNAVAILABLE;     FREQ : ONE CAPSULE DAILY FOR 21 DAYS AND THEN A SEVEN DAY BREAK
     Route: 048
     Dates: start: 20220629, end: 20220713
  2. DEXAMETHASONE [Concomitant]
     Active Substance: DEXAMETHASONE
     Indication: Product used for unknown indication
  3. ACYCLOVIR [Concomitant]
     Active Substance: ACYCLOVIR
     Indication: Prophylaxis
  4. LISINOPRIL [Concomitant]
     Active Substance: LISINOPRIL
     Indication: Cardiac disorder
  5. ATENOLOL [Concomitant]
     Active Substance: ATENOLOL
     Indication: Cardiac disorder

REACTIONS (2)
  - White blood cell count decreased [Unknown]
  - Femur fracture [Unknown]

NARRATIVE: CASE EVENT DATE: 20220101
